FAERS Safety Report 5344520-4 (Version None)
Quarter: 2007Q2

REPORT INFORMATION
  Report Type: 
  Country: None (occurrence: None)
  Receive Date: 20070604
  Receipt Date: 20070524
  Transmission Date: 20071010
  Serious: Yes (Death)
  Sender: FDA-Public Use
  Company Number: FR-PFIZER INC-2007042266

PATIENT
  Age: 81 Year
  Sex: Male
  Weight: 85 kg

DRUGS (18)
  1. ALDACTONE [Suspect]
     Route: 048
     Dates: start: 20070207, end: 20070219
  2. COLCHIMAX [Suspect]
     Indication: CHONDROCALCINOSIS
     Dosage: TEXT:1 DF-FREQ:DAILY
     Route: 048
     Dates: start: 20070205, end: 20070220
  3. CORDARONE [Suspect]
     Route: 048
  4. FLAGYL [Suspect]
     Indication: CLOSTRIDIUM DIFFICILE COLITIS
     Dosage: TEXT:3 DF
     Dates: start: 20070214, end: 20070219
  5. LASIX [Suspect]
  6. LOVENOX [Suspect]
     Dosage: TEXT:1 DF-FREQ:DAILY
  7. TAVANIC [Concomitant]
  8. CEFTRIAXONE [Concomitant]
  9. VENTOLIN [Concomitant]
  10. VASTEN [Concomitant]
  11. KARDEGIC [Concomitant]
  12. IMODIUM [Concomitant]
  13. SACCHAROMYCES BOULARDII [Concomitant]
  14. MONTELUKAST SODIUM [Concomitant]
  15. ZYLORIC ^FAES^ [Concomitant]
  16. SPIRIVA ^PFIZER^ [Concomitant]
  17. IMOVANE [Concomitant]
  18. ACETAMINOPHEN [Concomitant]

REACTIONS (3)
  - ALANINE AMINOTRANSFERASE INCREASED [None]
  - PANCYTOPENIA [None]
  - RENAL FAILURE ACUTE [None]
